FAERS Safety Report 8530533-8 (Version None)
Quarter: 2012Q3

REPORT INFORMATION
  Report Type: 
  Country: None (occurrence: None)
  Receive Date: 20120723
  Receipt Date: 20120706
  Transmission Date: 20120928
  Serious: Yes (Hospitalization)
  Sender: FDA-Public Use
  Company Number: JP-CELGENEUS-087-21880-12070815

PATIENT
  Sex: Male

DRUGS (6)
  1. REVLIMID [Suspect]
     Dosage: 15 MILLIGRAM
     Route: 048
     Dates: end: 20120117
  2. REVLIMID [Suspect]
     Indication: MULTIPLE MYELOMA
     Dosage: 25 MILLIGRAM
     Route: 048
     Dates: start: 20110713
  3. ELOTUZUMAB [Suspect]
     Indication: MULTIPLE MYELOMA
     Dosage: 20 MILLIGRAM/KILOGRAM
     Route: 041
     Dates: start: 20110713, end: 20120111
  4. DEXAMETHASONE [Suspect]
     Indication: MULTIPLE MYELOMA
     Route: 065
     Dates: start: 20110712, end: 20120118
  5. MECOBALAMIN [Concomitant]
     Route: 065
     Dates: start: 20111214, end: 20120210
  6. PREGABALIN [Concomitant]
     Route: 065
     Dates: start: 20111213, end: 20120210

REACTIONS (2)
  - NEUROPATHY PERIPHERAL [None]
  - CHOLELITHIASIS [None]
